FAERS Safety Report 6388069-9 (Version None)
Quarter: 2009Q4

REPORT INFORMATION
  Report Type: 
  Country: None (occurrence: None)
  Receive Date: 20091005
  Receipt Date: 20090921
  Transmission Date: 20100525
  Serious: Yes (Hospitalization)
  Sender: FDA-Public Use
  Company Number: ES-MYLANLABS-2009S1016582

PATIENT
  Age: 74 Year
  Sex: Male

DRUGS (7)
  1. CIPROFLOXACIN HYDROCHLORIDE [Suspect]
     Indication: URINARY RETENTION
  2. FLUOXETINE [Interacting]
     Dosage: FLUOXETINE SWITCHED TO CITALOPRAM ABOUT 2 WEEKS BEFORE ADMISSION
  3. CITALOPRAM HYDROBROMIDE [Interacting]
  4. REBOXETINE [Interacting]
  5. OXYBUTYNIN CHLORIDE [Concomitant]
     Indication: URINARY RETENTION
  6. ASPIRIN [Concomitant]
  7. ENALAPRIL MALEATE [Concomitant]

REACTIONS (2)
  - DRUG INTERACTION [None]
  - SEROTONIN SYNDROME [None]
